FAERS Safety Report 16299732 (Version 2)
Quarter: 2019Q3

REPORT INFORMATION
  Report Type: Report from Study
  Country: US (occurrence: US)
  Receive Date: 20190510
  Receipt Date: 20190819
  Transmission Date: 20191004
  Serious: No
  Sender: FDA-Public Use
  Company Number: PHEH2019US019862

PATIENT
  Sex: Female

DRUGS (1)
  1. GILENYA [Suspect]
     Active Substance: FINGOLIMOD HYDROCHLORIDE
     Indication: MULTIPLE SCLEROSIS
     Dosage: 0.5 MG, QD
     Route: 048
     Dates: start: 20180227

REACTIONS (7)
  - Hot flush [Not Recovered/Not Resolved]
  - Paranoia [Unknown]
  - Peripheral swelling [Unknown]
  - Pain [Unknown]
  - Drug interaction [Unknown]
  - Erythema [Unknown]
  - Thermal burn [Unknown]
